FAERS Safety Report 23112733 (Version 4)
Quarter: 2024Q4

REPORT INFORMATION
  Report Type: Spontaneous
  Country: US (occurrence: US)
  Receive Date: 20231027
  Receipt Date: 20241110
  Transmission Date: 20250114
  Serious: No
  Sender: SANOFI AVENTIS
  Company Number: US-SA-SAC20231020000313

PATIENT
  Age: 75 Year
  Sex: Male

DRUGS (2)
  1. DUPIXENT [Suspect]
     Active Substance: DUPILUMAB
     Indication: Eczema
     Dosage: 2 DF, 1X
     Route: 058
     Dates: start: 20230906, end: 20230906
  2. DUPIXENT [Suspect]
     Active Substance: DUPILUMAB
     Indication: Dermatitis atopic
     Dosage: 300 MG, QOW
     Route: 058
     Dates: start: 20230920

REACTIONS (12)
  - Loss of personal independence in daily activities [Unknown]
  - Mood altered [Unknown]
  - Eczema [Unknown]
  - Fall [Unknown]
  - Arthropathy [Unknown]
  - Procedural pain [Unknown]
  - Rebound eczema [Unknown]
  - Insomnia [Unknown]
  - Pruritus [Unknown]
  - Sinusitis [Recovered/Resolved]
  - Injection site pain [Unknown]
  - Arthralgia [Unknown]

NARRATIVE: CASE EVENT DATE: 20231001
